FAERS Safety Report 18151693 (Version 1)
Quarter: 2020Q3

REPORT INFORMATION
  Report Type: Spontaneous
  Country: US (occurrence: US)
  Receive Date: 20200814
  Receipt Date: 20200814
  Transmission Date: 20201103
  Serious: No
  Sender: FDA-Public Use
  Company Number: US-BAYER-2020-168428

PATIENT
  Age: 55 Year
  Sex: Male

DRUGS (1)
  1. ALEVE [Suspect]
     Active Substance: NAPROXEN SODIUM
     Indication: ANKYLOSING SPONDYLITIS
     Dosage: TAKES 2 OR 3 AT A TIME
     Dates: start: 1986

REACTIONS (3)
  - Extra dose administered [Unknown]
  - Eye paraesthesia [None]
  - Product use in unapproved indication [Unknown]
